FAERS Safety Report 10076584 (Version 1)
Quarter: 2014Q2

REPORT INFORMATION
  Report Type: Spontaneous
  Country: US (occurrence: US)
  Receive Date: 20140414
  Receipt Date: 20140414
  Transmission Date: 20141212
  Serious: No
  Sender: FDA-Public Use
  Company Number: US-PFIZER INC-2014103236

PATIENT
  Age: 76 Year
  Sex: Female

DRUGS (1)
  1. XELJANZ [Suspect]
     Dosage: 5 MG 1 TABLET, 2X/DAY
     Route: 048
     Dates: start: 201308

REACTIONS (2)
  - Contusion [Unknown]
  - Oedema peripheral [Unknown]
